FAERS Safety Report 4717323-9 (Version None)
Quarter: 2005Q3

REPORT INFORMATION
  Report Type: 
  Country: None (occurrence: None)
  Receive Date: 20050715
  Receipt Date: 20050620
  Transmission Date: 20060218
  Serious: Yes (Other)
  Sender: FDA-Public Use
  Company Number: 2005089939

PATIENT
  Sex: Male

DRUGS (3)
  1. DILANTIN [Suspect]
     Indication: ILL-DEFINED DISORDER
  2. TEGRETOL [Suspect]
     Indication: CONVULSION
     Dosage: 900 MG (300 MG, 3 IN 1 D)
  3. CARBAMAZEPINE [Suspect]
     Indication: CONVULSION
     Dates: start: 19940101, end: 20000101

REACTIONS (9)
  - ASPIRATION [None]
  - CONVULSION [None]
  - DISEASE RECURRENCE [None]
  - EYE DISORDER [None]
  - GINGIVAL SWELLING [None]
  - HYPERTRICHOSIS [None]
  - INFECTION [None]
  - SKIN DISCOLOURATION [None]
  - THERAPEUTIC RESPONSE UNEXPECTED WITH DRUG SUBSTITUTION [None]
